FAERS Safety Report 24990028 (Version 1)
Quarter: 2025Q1

REPORT INFORMATION
  Report Type: Report from Study
  Country: CA (occurrence: CA)
  Receive Date: 20250220
  Receipt Date: 20250220
  Transmission Date: 20250409
  Serious: Yes (Other)
  Sender: REGENERON
  Company Number: CA-BAYER-2025A023425

PATIENT
  Sex: Female

DRUGS (1)
  1. EYLEA [Suspect]
     Active Substance: AFLIBERCEPT
     Indication: Age-related macular degeneration
     Dates: start: 20240206

REACTIONS (1)
  - Age-related macular degeneration [Unknown]

NARRATIVE: CASE EVENT DATE: 20241201
